FAERS Safety Report 19603964 (Version 1)
Quarter: 2021Q3

REPORT INFORMATION
  Report Type: Spontaneous
  Country: CA (occurrence: CA)
  Receive Date: 20210723
  Receipt Date: 20210723
  Transmission Date: 20211014
  Serious: Yes (Other)
  Sender: FDA-Public Use
  Company Number: CA-ROCHE-2873660

PATIENT
  Sex: Female

DRUGS (13)
  1. LASIX [Concomitant]
     Active Substance: FUROSEMIDE
     Route: 048
  2. BENDAMUSTINE HYDROCHLORIDE. [Concomitant]
     Active Substance: BENDAMUSTINE HYDROCHLORIDE
     Indication: B-CELL LYMPHOMA
  3. BISOPROLOL [Concomitant]
     Active Substance: BISOPROLOL
     Route: 048
  4. DAPSONE. [Concomitant]
     Active Substance: DAPSONE
     Route: 048
  5. ACETYLSALICYLIC ACID [Concomitant]
     Active Substance: ASPIRIN
     Route: 048
  6. AMLODIPINE [Concomitant]
     Active Substance: AMLODIPINE BESYLATE
  7. HYDRALAZINE [Concomitant]
     Active Substance: HYDRALAZINE HYDROCHLORIDE
     Route: 048
  8. PHENYTOIN. [Concomitant]
     Active Substance: PHENYTOIN
     Route: 048
  9. ROSUVASTATIN. [Concomitant]
     Active Substance: ROSUVASTATIN
     Route: 048
  10. RITUXIMAB. [Suspect]
     Active Substance: RITUXIMAB
     Indication: B-CELL LYMPHOMA
     Route: 041
  11. DOXAZOSIN MESYLATE. [Concomitant]
     Active Substance: DOXAZOSIN MESYLATE
     Route: 048
  12. ENTECAVIR. [Concomitant]
     Active Substance: ENTECAVIR
     Route: 048
  13. IRBESARTAN. [Concomitant]
     Active Substance: IRBESARTAN
     Route: 048

REACTIONS (18)
  - Hepatitis B [Unknown]
  - Neutropenia [Unknown]
  - Peripheral swelling [Unknown]
  - Abdominal pain [Unknown]
  - Acne [Unknown]
  - Cytopenia [Unknown]
  - Oedema [Unknown]
  - Rash [Unknown]
  - Skin exfoliation [Unknown]
  - Skin fissures [Unknown]
  - Flushing [Unknown]
  - Blindness [Unknown]
  - Constipation [Unknown]
  - Cryoglobulinaemia [Unknown]
  - Fatigue [Unknown]
  - Glomerulonephritis [Unknown]
  - Nausea [Unknown]
  - Rash pruritic [Unknown]
